FAERS Safety Report 5514069-4 (Version None)
Quarter: 2007Q4

REPORT INFORMATION
  Report Type: 
  Country: None (occurrence: None)
  Receive Date: 20071109
  Receipt Date: 20071109
  Transmission Date: 20080405
  Serious: Yes (Death, Life-Threatening, Hospitalization)
  Sender: FDA-Public Use
  Company Number: None

PATIENT
  Age: 85 Year
  Sex: Male

DRUGS (3)
  1. ALENDRONATE SODIUM [Suspect]
     Indication: MYOCARDIAL INFARCTION
     Dosage: 70MG  QWEEK  PO
     Route: 048
     Dates: start: 20010119, end: 20070625
  2. ALENDRONATE SODIUM [Suspect]
     Indication: OSTEOPOROSIS
     Dosage: 70MG  QWEEK  PO
     Route: 048
     Dates: start: 20010119, end: 20070625
  3. ASPIRIN [Suspect]
     Indication: CORONARY ARTERY DISEASE
     Dosage: 81MG  EVERY DAY  PO
     Route: 048
     Dates: start: 20061204, end: 20070625

REACTIONS (6)
  - DUODENAL ULCER [None]
  - GASTRIC HAEMORRHAGE [None]
  - GASTROOESOPHAGEAL REFLUX DISEASE [None]
  - HIATUS HERNIA [None]
  - OESOPHAGITIS [None]
  - UPPER GASTROINTESTINAL HAEMORRHAGE [None]
